FAERS Safety Report 8988658 (Version 2)
Quarter: 2013Q1

REPORT INFORMATION
  Report Type: Spontaneous
  Country: US (occurrence: US)
  Receive Date: 20121227
  Receipt Date: 20130109
  Transmission Date: 20140127
  Serious: Yes (Death)
  Sender: FDA-Public Use
  Company Number: US-GILEAD-2012-0066904

PATIENT
  Sex: Female

DRUGS (4)
  1. LETAIRIS [Suspect]
     Indication: PULMONARY HYPERTENSION
     Dosage: 10 MG, QD
     Route: 048
     Dates: start: 20110628
  2. LETAIRIS [Suspect]
     Indication: SYSTEMIC SCLEROSIS
  3. REMODULIN [Suspect]
  4. TYVASO [Suspect]

REACTIONS (1)
  - Systemic sclerosis [Fatal]
